FAERS Safety Report 25997008 (Version 1)
Quarter: 2025Q4

REPORT INFORMATION
  Report Type: Spontaneous
  Country: CN (occurrence: CN)
  Receive Date: 20251104
  Receipt Date: 20251104
  Transmission Date: 20260119
  Serious: Yes (Life-Threatening, Hospitalization, Other)
  Sender: GENUS LIFESCIENCES
  Company Number: CN-Genus_Lifesciences-USA-ALL0580202500141

PATIENT
  Age: 36 Year
  Sex: Female

DRUGS (3)
  1. METOCLOPRAMIDE HYDROCHLORIDE [Suspect]
     Active Substance: METOCLOPRAMIDE HYDROCHLORIDE
     Indication: Suicide attempt
     Dosage: ONCE
     Route: 048
     Dates: start: 2025, end: 2025
  2. CARBAZOCHROME [Suspect]
     Active Substance: CARBAZOCHROME
     Indication: Suicide attempt
     Dosage: ONCE
     Route: 048
     Dates: start: 2025, end: 2025
  3. COENZYME Q10 [Suspect]
     Active Substance: DIETARY SUPPLEMENT\UBIDECARENONE
     Indication: Suicide attempt
     Dosage: ONCE
     Route: 048
     Dates: start: 2025, end: 2025

REACTIONS (3)
  - Suicide attempt [Recovered/Resolved]
  - Overdose [Recovered/Resolved]
  - Toxic encephalopathy [Recovered/Resolved]

NARRATIVE: CASE EVENT DATE: 20250101
